FAERS Safety Report 4978109-3 (Version None)
Quarter: 2006Q2

REPORT INFORMATION
  Report Type: 
  Country: None (occurrence: None)
  Receive Date: 20060420
  Receipt Date: 20060410
  Transmission Date: 20061013
  Serious: Yes (Hospitalization)
  Sender: FDA-Public Use
  Company Number: SE-SANOFI-SYNTHELABO-A01200602758

PATIENT
  Sex: Female

DRUGS (8)
  1. STILNOCT [Suspect]
     Indication: STUPOR
     Dosage: UNK
     Route: 048
     Dates: end: 20051225
  2. NEXIUM [Suspect]
     Indication: GASTRITIS
     Dosage: 20 MG
     Route: 048
     Dates: end: 20051227
  3. NEXIUM [Suspect]
     Indication: DUODENITIS
     Dosage: 20 MG
     Route: 048
     Dates: end: 20051227
  4. ACETAMINOPHEN [Concomitant]
     Indication: DRUG USE FOR UNKNOWN INDICATION
     Dosage: UNK
     Route: 048
  5. BETOLVEX [Concomitant]
     Indication: DRUG USE FOR UNKNOWN INDICATION
     Dosage: UNK
     Route: 048
  6. TROMBYL [Concomitant]
     Indication: DRUG USE FOR UNKNOWN INDICATION
     Dosage: UNK
     Route: 048
  7. LAKTULOS [Concomitant]
     Indication: DRUG USE FOR UNKNOWN INDICATION
     Dosage: UNK
     Route: 048
  8. KALCIPOS-D [Concomitant]
     Indication: DRUG USE FOR UNKNOWN INDICATION
     Dosage: UNK
     Route: 048

REACTIONS (10)
  - AMNESIA [None]
  - BLOOD PRESSURE INCREASED [None]
  - CONFUSIONAL STATE [None]
  - DYSPHEMIA [None]
  - HALLUCINATION [None]
  - MUSCLE TWITCHING [None]
  - PERSONALITY CHANGE [None]
  - PETIT MAL EPILEPSY [None]
  - PRURITUS [None]
  - RASH [None]
